FAERS Safety Report 4354401-0 (Version None)
Quarter: 2004Q2

REPORT INFORMATION
  Report Type: 
  Country: None (occurrence: None)
  Receive Date: 20040503
  Receipt Date: 20040421
  Transmission Date: 20050107
  Serious: Yes (Hospitalization)
  Sender: FDA-Public Use
  Company Number: 2004AP01169

PATIENT
  Age: 71 Year
  Sex: Male

DRUGS (9)
  1. IRESSA [Suspect]
     Indication: LUNG ADENOCARCINOMA
     Dosage: 250 MG DAILY; PO
     Route: 048
     Dates: start: 20031118, end: 20040120
  2. IRESSA [Suspect]
     Indication: NON-SMALL CELL LUNG CANCER
     Dosage: 250 MG DAILY; PO
     Route: 048
     Dates: start: 20031118, end: 20040120
  3. PREDNISOLONE [Concomitant]
  4. HYDANTOL [Concomitant]
  5. CISPLATIN [Concomitant]
  6. GEMCITABINE [Concomitant]
  7. CARBOPLATIN [Concomitant]
  8. PACLITAXEL [Concomitant]
  9. DOCETAXEL [Concomitant]

REACTIONS (9)
  - BRAIN OEDEMA [None]
  - DEHYDRATION [None]
  - ERYTHEMA [None]
  - GAMMA-GLUTAMYLTRANSFERASE INCREASED [None]
  - OTITIS EXTERNA [None]
  - PYREXIA [None]
  - RENAL IMPAIRMENT [None]
  - SKIN SWELLING [None]
  - TOXIC SKIN ERUPTION [None]
